FAERS Safety Report 15506454 (Version 18)
Quarter: 2019Q4

REPORT INFORMATION
  Report Type: Spontaneous
  Country: CA (occurrence: CA)
  Receive Date: 20181016
  Receipt Date: 20191008
  Transmission Date: 20200122
  Serious: Yes (Hospitalization, Other)
  Sender: FDA-Public Use
  Company Number: CA-CELLTRION INC.-2018CA021591

PATIENT

DRUGS (18)
  1. INFLECTRA [Suspect]
     Active Substance: INFLIXIMAB-DYYB
     Indication: CROHN^S DISEASE
     Dosage: 530 MG (10MG/KG), (EVERY 2, 6 WEEKS, THEN EVERY 8 WEEKS)
     Route: 042
     Dates: start: 20180711
  2. INFLECTRA [Suspect]
     Active Substance: INFLIXIMAB-DYYB
     Dosage: 500 MG, EVERY 2, 6 WEEKS, THEN EVERY 8 WEEKS
     Route: 042
     Dates: start: 20180719
  3. INFLECTRA [Suspect]
     Active Substance: INFLIXIMAB-DYYB
     Dosage: 500 MG, EVERY 2, 6 WEEKS, THEN EVERY 8 WEEKS
     Route: 042
     Dates: start: 20180719
  4. PREDNISONE. [Concomitant]
     Active Substance: PREDNISONE
     Dosage: 40 MG DAILY FOR 1 WEEK, THEN TAPPER BY 5MG WEEKLY UNTIL TAPERED OFF.
     Route: 048
     Dates: start: 20180706
  5. INFLECTRA [Suspect]
     Active Substance: INFLIXIMAB-DYYB
     Dosage: 300 MG (5 MG/KG) WEEK 0 THEN 600 MG (10MG PER KG) WEEK 2, 6 THEN EVERY 8 WEEKS
     Route: 042
     Dates: start: 20190308
  6. INFLECTRA [Suspect]
     Active Substance: INFLIXIMAB-DYYB
     Dosage: 300 MG (5 MG/KG) WEEK 0 THEN 600 MG (10MG PER KG) WEEK 2, 6 THEN EVERY 8 WEEKS
     Route: 042
     Dates: start: 20190322
  7. INFLECTRA [Suspect]
     Active Substance: INFLIXIMAB-DYYB
     Dosage: 300 MG (5 MG/KG) WEEK 0 THEN 600 MG (10MG PER KG) WEEK 2, 6 THEN EVERY 8 WEEKS
     Route: 042
     Dates: start: 20190418
  8. VITAMIN B C COMPLEX [Concomitant]
     Dosage: UNK, ONCE DAILY
     Route: 048
  9. ADVIL [Concomitant]
     Active Substance: IBUPROFEN
     Dosage: UNK (6-8 ADVIL IN THE MORNING AND THROUGH THE DAY)
  10. INFLECTRA [Suspect]
     Active Substance: INFLIXIMAB-DYYB
     Dosage: 10 MG/KG, (EVERY 2, 6, WEEKS, THEN EVERY 8 WEEKS)
     Route: 042
     Dates: start: 20180824
  11. INFLECTRA [Suspect]
     Active Substance: INFLIXIMAB-DYYB
     Dosage: 300 MG (5 MG/KG) WEEK 0 THEN 600 MG (10MG PER KG) WEEK 2, 6 THEN EVERY 8 WEEKS
     Route: 042
     Dates: start: 20190625
  12. CALCIUM CARBONATE. [Concomitant]
     Active Substance: CALCIUM CARBONATE
     Dosage: 500 MG, 2X/DAY
  13. PREDNISONE. [Concomitant]
     Active Substance: PREDNISONE
     Dosage: 40 MG OD (1X/DAY) TAPERING WEEKLY ON FRIDAYS
     Route: 048
     Dates: start: 20180706
  14. DALTEPARIN [Concomitant]
     Active Substance: DALTEPARIN
     Dosage: 5000 UNIT/0.2 ML SYRINGE
  15. SOLU-MEDROL [Concomitant]
     Active Substance: METHYLPREDNISOLONE SODIUM SUCCINATE
     Dosage: 20 MG, 3X/DAY
     Route: 042
  16. VITAMIN D [VITAMIN D NOS] [Concomitant]
     Active Substance: VITAMIN D NOS
     Dosage: 1000 MG, DAILY
  17. ADVIL [Concomitant]
     Active Substance: IBUPROFEN
     Dosage: UNK (6-8 ADVIL IN THE MORNING AND THROUGH THE DAY)
  18. PANTOPRAZOLE [Concomitant]
     Active Substance: PANTOPRAZOLE
     Dosage: 40 MG, UNK

REACTIONS (23)
  - Rash [Not Recovered/Not Resolved]
  - Disease recurrence [Not Recovered/Not Resolved]
  - Blood pressure fluctuation [Unknown]
  - Vomiting [Not Recovered/Not Resolved]
  - Appetite disorder [Not Recovered/Not Resolved]
  - Drug ineffective [Recovered/Resolved]
  - Heart rate irregular [Unknown]
  - Gastrointestinal wall thickening [Unknown]
  - Gastrointestinal disorder [Unknown]
  - Nausea [Unknown]
  - Incorrect dose administered [Unknown]
  - Condition aggravated [Recovered/Resolved]
  - Abdominal pain [Not Recovered/Not Resolved]
  - Diarrhoea haemorrhagic [Not Recovered/Not Resolved]
  - Dyspnoea [Unknown]
  - Off label use [Unknown]
  - Constipation [Not Recovered/Not Resolved]
  - Large intestinal stenosis [Not Recovered/Not Resolved]
  - Diarrhoea [Not Recovered/Not Resolved]
  - Inappropriate schedule of product administration [Unknown]
  - Gastrointestinal oedema [Unknown]
  - Weight increased [Unknown]
  - Abdominal distension [Unknown]

NARRATIVE: CASE EVENT DATE: 2018
